FAERS Safety Report 5640906-9 (Version None)
Quarter: 2008Q1

REPORT INFORMATION
  Report Type: 
  Country: None (occurrence: None)
  Receive Date: 20080227
  Receipt Date: 20080218
  Transmission Date: 20080703
  Serious: Yes (Other)
  Sender: FDA-Public Use
  Company Number: D0055225A

PATIENT
  Age: 17 Year
  Sex: Female
  Weight: 49 kg

DRUGS (3)
  1. LENOXIN [Suspect]
     Dosage: .1875MG TWICE PER DAY
     Route: 048
     Dates: start: 20020101
  2. MIRANOVA [Suspect]
     Indication: ORAL CONTRACEPTION
     Dosage: .12MG PER DAY
     Route: 048
     Dates: start: 20071001, end: 20071201
  3. LOPIRIN [Concomitant]
     Dosage: 25MG TWICE PER DAY
     Route: 048
     Dates: start: 20020101

REACTIONS (4)
  - BLOOD POTASSIUM ABNORMAL [None]
  - CARDIOACTIVE DRUG LEVEL INCREASED [None]
  - DRUG EFFECT INCREASED [None]
  - DRUG INTERACTION [None]
